FAERS Safety Report 4621929-5 (Version None)
Quarter: 2005Q1

REPORT INFORMATION
  Report Type: 
  Country: None (occurrence: None)
  Receive Date: 20050329
  Receipt Date: 20050221
  Transmission Date: 20050727
  Serious: Yes (Hospitalization, Other)
  Sender: FDA-Public Use
  Company Number: PHBS2005TW02600

PATIENT
  Age: 26 Year
  Sex: Male

DRUGS (4)
  1. TRILEPTAL [Suspect]
     Route: 048
  2. SABRIL [Concomitant]
     Route: 065
  3. LAMICTAL [Concomitant]
     Route: 065
  4. DILANTIN [Concomitant]
     Route: 065

REACTIONS (4)
  - ALANINE AMINOTRANSFERASE INCREASED [None]
  - ASPARTATE AMINOTRANSFERASE INCREASED [None]
  - BLOOD BILIRUBIN INCREASED [None]
  - HEPATITIS [None]
